FAERS Safety Report 24552928 (Version 1)
Quarter: 2024Q4

REPORT INFORMATION
  Report Type: Spontaneous
  Country: SK (occurrence: SK)
  Receive Date: 20241027
  Receipt Date: 20241027
  Transmission Date: 20250115
  Serious: Yes (Other)
  Sender: SANOFI AVENTIS
  Company Number: SK-SA-2024SA306657

PATIENT
  Age: 41 Year
  Sex: Female

DRUGS (1)
  1. DUPILUMAB [Suspect]
     Active Substance: DUPILUMAB
     Indication: Cutaneous T-cell lymphoma stage I

REACTIONS (3)
  - Cutaneous T-cell lymphoma stage I [Unknown]
  - Unintentional use for unapproved indication [Unknown]
  - Condition aggravated [Unknown]
